FAERS Safety Report 12279031 (Version 2)
Quarter: 2016Q2

REPORT INFORMATION
  Report Type: Spontaneous
  Country: JP (occurrence: JP)
  Receive Date: 20160418
  Receipt Date: 20160503
  Transmission Date: 20160815
  Serious: Yes (Other)
  Sender: FDA-Public Use
  Company Number: JP-AMGEN-JPNSP2016047445

PATIENT
  Age: 75 Year
  Sex: Male
  Weight: 46 kg

DRUGS (1)
  1. ENBREL [Suspect]
     Active Substance: ETANERCEPT
     Indication: RHEUMATOID ARTHRITIS
     Dosage: 25 MG, CYCLIC, ONCE PER TWO WEEKS
     Route: 058
     Dates: start: 20120627, end: 20150804

REACTIONS (1)
  - Pyoderma [Recovering/Resolving]

NARRATIVE: CASE EVENT DATE: 20150819
